FAERS Safety Report 6706355-7 (Version None)
Quarter: 2010Q2

REPORT INFORMATION
  Report Type: 
  Country: None (occurrence: None)
  Receive Date: 20100503
  Receipt Date: 20100421
  Transmission Date: 20101027
  Serious: Yes (Hospitalization, Other)
  Sender: FDA-Public Use
  Company Number: US-ELI_LILLY_AND_COMPANY-US201001005056

PATIENT
  Sex: Female

DRUGS (22)
  1. FORTEO [Suspect]
     Indication: OSTEOPOROSIS
     Dosage: 20 UG, EACH MORNING
     Dates: start: 20080601
  2. ALLOPURINOL [Concomitant]
     Dosage: 300 MG, UNKNOWN
  3. LOTREL [Concomitant]
  4. ATENOLOL [Concomitant]
     Dosage: 50 MG, UNKNOWN
  5. ASPIRIN [Concomitant]
     Dosage: 81 MG, UNKNOWN
  6. FENTANYL [Concomitant]
     Dosage: 25 D/F, UNKNOWN
  7. FOLIC ACID [Concomitant]
     Dosage: 1 MG, UNKNOWN
  8. LASIX [Concomitant]
     Dosage: 40 MG, EACH MORNING
  9. LASIX [Concomitant]
     Dosage: 40 MG, EACH EVENING
  10. PLAQUENIL /00072601/ [Concomitant]
     Dosage: UNK, UNK
  11. IRON [Concomitant]
     Dosage: 324 MG, UNKNOWN
  12. LEVOTHYROXINE [Concomitant]
     Dosage: 150 UG, DAILY (1/D)
  13. METHOTREXATE [Concomitant]
  14. PREDNISONE TAB [Concomitant]
     Dosage: 20 MG, UNKNOWN
  15. COUMADIN [Concomitant]
     Dosage: 1.5 MG, UNKNOWN
  16. ZOCOR [Concomitant]
  17. VITAMIN C [Concomitant]
  18. CALCIUM W/VITAMIN D NOS [Concomitant]
     Dosage: UNK D/F, UNKNOWN
  19. VITAMIN B COMPLEX CAP [Concomitant]
     Dosage: 100 MG, UNKNOWN
  20. VITAMIN E /00110501/ [Concomitant]
     Dosage: 400 IU, UNKNOWN
  21. LUTEIN [Concomitant]
     Dosage: 20 MG, UNKNOWN
  22. PRILOSEC [Concomitant]
     Dosage: 20 MG, UNKNOWN

REACTIONS (4)
  - ATELECTASIS [None]
  - BRONCHITIS [None]
  - CHEST PAIN [None]
  - PNEUMONIA [None]
